FAERS Safety Report 4594670-5 (Version None)
Quarter: 2005Q1

REPORT INFORMATION
  Report Type: 
  Country: None (occurrence: None)
  Receive Date: 20050301
  Receipt Date: 20041210
  Transmission Date: 20050727
  Serious: Yes (Other)
  Sender: FDA-Public Use
  Company Number: US-BRISTOL-MYERS SQUIBB COMPANY-12791455

PATIENT
  Age: 74 Year
  Sex: Male

DRUGS (8)
  1. ERBITUX [Suspect]
     Indication: PANCREATIC CARCINOMA
     Dosage: INIT.ON 20-OCT-2004(03C00245B EXP. JUNE 2006)/NOW 3RD CYCLE ADMIN.OVER 2 HRS F/B 1 HR OBSERVATION.
     Route: 042
  2. ATROPINE [Concomitant]
     Indication: PREMEDICATION
     Dosage: ADMINISTERED IV PUSH PRIOR TO IRINOTECAN.
     Route: 042
  3. BENADRYL [Concomitant]
     Indication: PREMEDICATION
  4. DEXAMETHASONE [Concomitant]
     Indication: PREMEDICATION
  5. TYLENOL (CAPLET) [Concomitant]
     Indication: PREMEDICATION
  6. ZOFRAN [Concomitant]
     Indication: PREMEDICATION
     Dosage: 15 MINUTES PRIOR TO MEDS/CHEMO.
  7. IRINOTECAN HCL [Concomitant]
  8. CHEMOTHERAPY [Concomitant]

REACTIONS (1)
  - DERMATITIS EXFOLIATIVE [None]
